FAERS Safety Report 24439150 (Version 2)
Quarter: 2024Q4

REPORT INFORMATION
  Report Type: Spontaneous
  Country: US (occurrence: US)
  Receive Date: 20241015
  Receipt Date: 20241021
  Transmission Date: 20250114
  Serious: Yes (Other)
  Sender: ORGANON
  Company Number: US-ORGANON-O2410USA000785

PATIENT
  Sex: Male

DRUGS (1)
  1. ASMANEX [Suspect]
     Active Substance: MOMETASONE FUROATE
     Dosage: 2 PUFFS DAILY (120 DOSE)
     Dates: start: 202409

REACTIONS (6)
  - Product contamination microbial [Unknown]
  - Poor quality device used [Unknown]
  - Product odour abnormal [Unknown]
  - Exposure to contaminated device [Unknown]
  - Product quality issue [Unknown]
  - Prescribed overdose [Unknown]

NARRATIVE: CASE EVENT DATE: 20240101
